FAERS Safety Report 12582378 (Version 1)
Quarter: 2016Q3

REPORT INFORMATION
  Report Type: Spontaneous
  Country: GB (occurrence: None)
  Receive Date: 20160721
  Receipt Date: 20160721
  Transmission Date: 20161109
  Serious: Yes (Disabling, Other)
  Sender: FDA-Public Use
  Company Number: None

PATIENT
  Age: 19 Year
  Sex: Male
  Weight: 50.8 kg

DRUGS (1)
  1. SERTRALINE PFIZER [Suspect]
     Active Substance: SERTRALINE HYDROCHLORIDE

REACTIONS (6)
  - Hypoaesthesia [None]
  - Ejaculation disorder [None]
  - Withdrawal syndrome [None]
  - Orgasm abnormal [None]
  - Gastrointestinal disorder [None]
  - Anxiety [None]

NARRATIVE: CASE EVENT DATE: 20090716
